FAERS Safety Report 17969995 (Version 1)
Quarter: 2020Q3

REPORT INFORMATION
  Report Type: Spontaneous
  Country: NL (occurrence: DE)
  Receive Date: 20200701
  Receipt Date: 20200701
  Transmission Date: 20201103
  Serious: Yes (Other)
  Sender: FDA-Public Use
  Company Number: DE-FRESENIUS KABI-FK202006584

PATIENT
  Sex: Female

DRUGS (9)
  1. GOSERELIN [Concomitant]
     Active Substance: GOSERELIN
     Indication: BREAST CANCER
     Dosage: UNK
     Route: 065
     Dates: start: 2005, end: 2008
  2. TAMOXIFEN [Suspect]
     Active Substance: TAMOXIFEN
     Dosage: UNK
     Route: 065
     Dates: start: 201308, end: 201401
  3. CYCLOPHOSPHAMIDE. [Suspect]
     Active Substance: CYCLOPHOSPHAMIDE
     Indication: BREAST CANCER
     Dosage: UNK 6 CYCLES
     Route: 065
     Dates: start: 200303, end: 200407
  4. BEVACIZUMAB. [Concomitant]
     Active Substance: BEVACIZUMAB
     Indication: BREAST CANCER
     Dosage: UNK
     Route: 065
     Dates: start: 201404, end: 201509
  5. DENOSUMAB [Concomitant]
     Active Substance: DENOSUMAB
     Indication: PRODUCT USED FOR UNKNOWN INDICATION
     Dosage: UNK, QD (28DAYS)
     Route: 065
     Dates: start: 201403
  6. EPIRUBICIN [Suspect]
     Active Substance: EPIRUBICIN
     Indication: BREAST CANCER
     Dosage: UNK 6 CYCLES
     Route: 065
     Dates: start: 200303, end: 200407
  7. TAMOXIFEN [Suspect]
     Active Substance: TAMOXIFEN
     Indication: BREAST CANCER
     Dosage: UNK
     Route: 065
     Dates: start: 2005, end: 2008
  8. TAMOXIFEN [Suspect]
     Active Substance: TAMOXIFEN
     Dosage: UNK
     Route: 065
     Dates: start: 201412, end: 201509
  9. PACLITAXEL (MANUFACTURER UNKNOWN) [Suspect]
     Active Substance: PACLITAXEL
     Indication: BREAST CANCER
     Dosage: UNK
     Route: 065
     Dates: start: 201404

REACTIONS (14)
  - Lung disorder [Unknown]
  - Metastases to lung [Unknown]
  - Breast cancer recurrent [Unknown]
  - Spinal cord neoplasm [Unknown]
  - Osteolysis [Unknown]
  - Malignant neoplasm progression [Unknown]
  - Ascites [Unknown]
  - Second primary malignancy [Unknown]
  - Metastases to liver [Unknown]
  - Metastases to thorax [Unknown]
  - Metastases to bone [Unknown]
  - Cervical vertebral fracture [Unknown]
  - Squamous cell carcinoma [Unknown]
  - Renal disorder [Unknown]

NARRATIVE: CASE EVENT DATE: 201204
